FAERS Safety Report 5214207-7 (Version None)
Quarter: 2007Q1

REPORT INFORMATION
  Report Type: 
  Country: None (occurrence: None)
  Receive Date: 20070122
  Receipt Date: 20070112
  Transmission Date: 20070707
  Serious: Yes (Hospitalization)
  Sender: FDA-Public Use
  Company Number: US-JNJFOC-20070103405

PATIENT
  Age: 32 Year
  Sex: Female

DRUGS (3)
  1. FENTANYL TRANSDERMAL SYSTEM [Suspect]
     Indication: INTENTIONAL DRUG MISUSE
     Route: 062
  2. ASPIRIN [Suspect]
     Indication: INTENTIONAL DRUG MISUSE
     Route: 048
  3. BENZODIAZEPINE [Concomitant]

REACTIONS (7)
  - AGITATION [None]
  - CONFUSIONAL STATE [None]
  - DEPRESSED LEVEL OF CONSCIOUSNESS [None]
  - INTENTIONAL DRUG MISUSE [None]
  - PNEUMONIA ASPIRATION [None]
  - RESPIRATORY ALKALOSIS [None]
  - SUICIDE ATTEMPT [None]
